FAERS Safety Report 16050919 (Version 2)
Quarter: 2020Q2

REPORT INFORMATION
  Report Type: Spontaneous
  Country: US (occurrence: US)
  Receive Date: 20190308
  Receipt Date: 20200611
  Transmission Date: 20200713
  Serious: Yes (Hospitalization)
  Sender: FDA-Public Use
  Company Number: US-JNJFOC-20190235902

PATIENT
  Age: 47 Year
  Sex: Male
  Weight: 79.4 kg

DRUGS (1)
  1. XARELTO [Suspect]
     Active Substance: RIVAROXABAN
     Indication: PORTAL VEIN THROMBOSIS
     Route: 048
     Dates: start: 201501, end: 201804

REACTIONS (5)
  - Off label use [Unknown]
  - Contusion [Recovering/Resolving]
  - Product use in unapproved indication [Unknown]
  - Gastrointestinal haemorrhage [Recovering/Resolving]
  - Syncope [Recovering/Resolving]

NARRATIVE: CASE EVENT DATE: 20180409
